FAERS Safety Report 7319997-5 (Version None)
Quarter: 2011Q1

REPORT INFORMATION
  Report Type: 
  Country: None (occurrence: None)
  Receive Date: 20110228
  Receipt Date: 20110222
  Transmission Date: 20110831
  Serious: Yes (Hospitalization)
  Sender: FDA-Public Use
  Company Number: UA-PFIZER INC-2011038102

PATIENT
  Age: 63 Year
  Sex: Female
  Weight: 90 kg

DRUGS (11)
  1. BLINDED NO SUBJECT DRUG [Suspect]
     Indication: RHEUMATOID ARTHRITIS
     Dosage: CP-690,550/PLACEBO, 2X/DAY
     Route: 048
     Dates: start: 20100902
  2. BLINDED CP-690,550 [Suspect]
     Indication: RHEUMATOID ARTHRITIS
     Dosage: CP-690,550/PLACEBO, 2X/DAY
     Route: 048
     Dates: start: 20100902
  3. FOLIC ACID [Concomitant]
     Indication: RHEUMATOID ARTHRITIS
     Dosage: 2.5 MG, 4X/WEEK
     Route: 048
     Dates: start: 20100904
  4. BLINDED NO SUBJECT DRUG [Suspect]
     Dosage: METHOTREXATE/PLACEBO, 1X/WEEK
     Route: 048
     Dates: start: 20100902
  5. BLINDED CP-690,550 [Suspect]
     Dosage: METHOTREXATE/PLACEBO, 1X/WEEK
     Route: 048
     Dates: start: 20100902
  6. BLINDED METHOTREXATE SODIUM [Suspect]
     Dosage: METHOTREXATE/PLACEBO, 1X/WEEK
     Route: 048
     Dates: start: 20100902
  7. BLINDED PLACEBO [Suspect]
     Dosage: METHOTREXATE/PLACEBO, 1X/WEEK
     Route: 048
     Dates: start: 20100902
  8. BLINDED METHOTREXATE SODIUM [Suspect]
     Indication: RHEUMATOID ARTHRITIS
     Dosage: CP-690,550/PLACEBO, 2X/DAY
     Route: 048
     Dates: start: 20100902
  9. METHYLPREDNISOLONE [Suspect]
     Indication: RHEUMATOID ARTHRITIS
     Dosage: 8 MG, 1X/DAY
     Route: 048
     Dates: start: 20090701
  10. DICLOFENAC [Suspect]
     Indication: RHEUMATOID ARTHRITIS
     Dosage: 100 MG, 1X/DAY
     Route: 048
     Dates: start: 20100601
  11. BLINDED PLACEBO [Suspect]
     Indication: RHEUMATOID ARTHRITIS
     Dosage: CP-690,550/PLACEBO, 2X/DAY
     Route: 048
     Dates: start: 20100902

REACTIONS (1)
  - ACUTE CORONARY SYNDROME [None]
